FAERS Safety Report 9839121 (Version 1)
Quarter: 2014Q1

REPORT INFORMATION
  Report Type: Spontaneous
  Country: FR (occurrence: None)
  Receive Date: 20140116
  Receipt Date: 20140116
  Transmission Date: 20141002
  Serious: Yes (Hospitalization)
  Sender: FDA-Public Use
  Company Number: FR-2014-0013

PATIENT
  Age: 57 Year
  Sex: Female

DRUGS (3)
  1. NAVELBINE [Suspect]
     Indication: NON-SMALL CELL LUNG CANCER
     Route: 042
     Dates: start: 20131022
  2. CISPLATIN [Suspect]
     Indication: NON-SMALL CELL LUNG CANCER
     Route: 042
     Dates: start: 20131022, end: 20131022
  3. ANTICOAGULANT SODIUM CITRATE (SODIUM CITRATE DIHYDRATE, WATER FOR INJECTION) [Concomitant]

REACTIONS (2)
  - Posterior reversible encephalopathy syndrome [None]
  - Hypertension [None]
